FAERS Safety Report 6444206-9 (Version None)
Quarter: 2009Q4

REPORT INFORMATION
  Report Type: 
  Country: None (occurrence: None)
  Receive Date: 20091118
  Receipt Date: 20091104
  Transmission Date: 20100525
  Serious: Yes (Hospitalization)
  Sender: FDA-Public Use
  Company Number: IT-ROCHE-666680

PATIENT
  Sex: Female
  Weight: 41.8 kg

DRUGS (10)
  1. METHOXY POLYETHYLENE GLYCOL-EPOETIN BETA [Suspect]
     Dosage: TEMPORARILY INTERRUPTED ON 20 OCTOBER 2009
     Route: 058
     Dates: start: 20090129, end: 20091020
  2. TAPAZOLE [Concomitant]
     Dates: start: 20020718
  3. LASIX [Concomitant]
     Dates: start: 20091026
  4. ISOPTIN [Concomitant]
     Dates: start: 20091026
  5. ENOXAPARIN SODIUM [Concomitant]
     Dates: start: 20091026
  6. TAVANIC [Concomitant]
     Dates: start: 20091026
  7. LANSOX [Concomitant]
     Dates: start: 20081224, end: 20091025
  8. LANSOX [Concomitant]
     Dates: start: 20091026
  9. RYTMONORM [Concomitant]
     Dates: start: 20020718, end: 20091025
  10. DIURESIX [Concomitant]
     Dates: start: 20040611, end: 20091025

REACTIONS (3)
  - ATRIAL FIBRILLATION [None]
  - DYSPNOEA [None]
  - SKIN LESION [None]
